FAERS Safety Report 24832491 (Version 1)
Quarter: 2025Q1

REPORT INFORMATION
  Report Type: Other
  Country: SG (occurrence: SG)
  Receive Date: 20250110
  Receipt Date: 20250110
  Transmission Date: 20250409
  Serious: Yes (Other)
  Sender: B BRAUN
  Company Number: SG-B.Braun Medical Inc.-2168837

PATIENT
  Age: 87 Year
  Sex: Male

DRUGS (2)
  1. LIDOCAINE HYDROCHLORIDE [Suspect]
     Active Substance: LIDOCAINE HYDROCHLORIDE
     Indication: Local anaesthesia
  2. MIDAZOLAM [Concomitant]
     Active Substance: MIDAZOLAM

REACTIONS (6)
  - Respiratory disorder [Recovered/Resolved]
  - Accidental high spinal anaesthesia [Recovered/Resolved]
  - Hypertension [Recovered/Resolved]
  - Muscular weakness [Recovered/Resolved]
  - Dysphonia [Recovered/Resolved]
  - Oxygen saturation decreased [Recovered/Resolved]
